FAERS Safety Report 9153995 (Version 1)
Quarter: 2013Q1

REPORT INFORMATION
  Report Type: Spontaneous
  Country: GB (occurrence: None)
  Receive Date: 20130207
  Receipt Date: 20130207
  Transmission Date: 20140127
  Serious: Yes (Hospitalization, Disabling)
  Sender: FDA-Public Use
  Company Number: 2013-01853

PATIENT
  Age: 40 Year
  Sex: Male
  Weight: 77 kg

DRUGS (12)
  1. CITALOPRAM HYDROBROMIDE [Suspect]
     Indication: ANXIETY
     Dosage: 10MG, THEN 20MG, UNK, ORAL
     Route: 048
     Dates: start: 20121111
  2. DOXYCYCLINE (DOXYCYLINE) [Concomitant]
  3. LEVOMETHOL (LEVOMENTHOL) [Concomitant]
  4. GLUCOSAMINE+CHONDROITIN (CHONDROITIN SULFATE SODIUM, GLUCOSAMINE HYDROCHLORIDE) [Concomitant]
  5. PARACETAMOL (PARACETAMOL) [Concomitant]
  6. INSULIN HUMAN (INSULIN HUMAN) [Concomitant]
  7. DEXTROMETHORPHAN HYDROBROMIDE (DEXTROMETHORPHAN HYDROBROMIDE) [Concomitant]
  8. DIPHENHYDRAMINE HYDROCHLORIDE (DIPHENHYDRAMINE HYDROCHLORIDE) [Concomitant]
  9. PROMETHAZINE (PROMETHAZINE) [Concomitant]
  10. COENZYME Q10 (UBIDECARENONE) [Concomitant]
  11. ECHINACEA (ECHINACEA PURPUREA) [Concomitant]
  12. NIACIN (NICOTINIC ACID) [Concomitant]

REACTIONS (12)
  - Libido decreased [None]
  - Haemorrhage [None]
  - Headache [None]
  - Nausea [None]
  - Insomnia [None]
  - Prothrombin level abnormal [None]
  - Contusion [None]
  - Hyperglycaemia [None]
  - Viral infection [None]
  - Incorrect dose administered [None]
  - Influenza [None]
  - Sinusitis [None]
